FAERS Safety Report 5596451-2 (Version None)
Quarter: 2008Q1

REPORT INFORMATION
  Report Type: 
  Country: None (occurrence: None)
  Receive Date: 20080118
  Receipt Date: 20080109
  Transmission Date: 20080703
  Serious: Yes (Hospitalization)
  Sender: FDA-Public Use
  Company Number: JP-PFIZER INC-2007048200

PATIENT
  Sex: Male
  Weight: 51 kg

DRUGS (16)
  1. ZYVOX [Suspect]
     Indication: PNEUMONIA STAPHYLOCOCCAL
     Route: 042
     Dates: start: 20070519, end: 20070526
  2. ZYVOX [Suspect]
     Indication: STAPHYLOCOCCAL SEPSIS
  3. DALACIN S [Suspect]
     Route: 042
     Dates: start: 20070519, end: 20070528
  4. FRAGMIN [Suspect]
     Route: 042
  5. MEROPEN [Suspect]
     Route: 042
     Dates: start: 20070518, end: 20070525
  6. PLETAL [Suspect]
     Route: 048
  7. SAXIZON [Suspect]
     Route: 042
  8. NORADRENALINE [Concomitant]
     Route: 042
     Dates: start: 20070519, end: 20070520
  9. MIDAZOLAM HCL [Concomitant]
     Route: 042
  10. LEPETAN [Concomitant]
     Route: 042
  11. ELASPOL [Concomitant]
     Route: 042
     Dates: start: 20070519, end: 20070601
  12. PLATELETS [Concomitant]
     Route: 042
     Dates: start: 20070519, end: 20070519
  13. RED BLOOD CELLS [Concomitant]
     Route: 042
     Dates: start: 20070519, end: 20070519
  14. FRESH FROZEN PLASMA [Concomitant]
     Route: 042
     Dates: start: 20070519, end: 20070519
  15. MIRACLID [Concomitant]
     Route: 042
     Dates: start: 20070519, end: 20070520
  16. SULPERAZON [Concomitant]
     Route: 042
     Dates: start: 20070517, end: 20070518

REACTIONS (4)
  - DIABETES MELLITUS [None]
  - GASTROINTESTINAL HAEMORRHAGE [None]
  - PLATELET COUNT DECREASED [None]
  - SUPERINFECTION [None]
